FAERS Safety Report 7489118-7 (Version None)
Quarter: 2011Q2

REPORT INFORMATION
  Report Type: 
  Country: None (occurrence: None)
  Receive Date: 20110518
  Receipt Date: 20110503
  Transmission Date: 20111010
  Serious: Yes (Other)
  Sender: FDA-Public Use
  Company Number: AU-TYCO HEALTHCARE/MALLINCKRODT-T201100938

PATIENT
  Sex: Female

DRUGS (6)
  1. ENDONE [Concomitant]
     Dosage: UNK
  2. EXALGO [Suspect]
     Indication: PAIN
     Dosage: 4 MG, SINGLE
     Route: 048
     Dates: start: 20110301
  3. CYMBALTA [Concomitant]
     Indication: DEPRESSION
     Dosage: 1 DOSE, TWO IN ONE DAY
  4. DURAGESIC-100 [Concomitant]
     Dosage: 200 UG/HR, UNK
  5. ENDONE [Concomitant]
     Dosage: 5 MG, 2 IN 1 DAY
     Dates: start: 20110330
  6. MS CONTIN [Concomitant]
     Dosage: 120 MG, QD

REACTIONS (1)
  - SEROTONIN SYNDROME [None]
